FAERS Safety Report 9706254 (Version 2)
Quarter: 2013Q4

REPORT INFORMATION
  Report Type: Spontaneous
  Country: JP (occurrence: JP)
  Receive Date: 20131125
  Receipt Date: 20131223
  Transmission Date: 20140711
  Serious: Yes (Hospitalization)
  Sender: FDA-Public Use
  Company Number: JP-ROCHE-1305721

PATIENT
  Age: 62 Year
  Sex: Female
  Weight: 60 kg

DRUGS (3)
  1. HERCEPTIN [Suspect]
     Indication: BREAST CANCER
     Route: 041
     Dates: start: 20131022, end: 20131022
  2. TAXOTERE [Suspect]
     Indication: BREAST CANCER
     Dosage: 80MG/BODY
     Route: 041
     Dates: start: 20131022, end: 20131022
  3. ENDOXAN [Suspect]
     Indication: BREAST CANCER
     Dosage: 600MG/BODY
     Route: 041

REACTIONS (1)
  - Hepatic function abnormal [Recovered/Resolved]
